FAERS Safety Report 25284279 (Version 2)
Quarter: 2025Q2

REPORT INFORMATION
  Report Type: Spontaneous
  Country: US (occurrence: US)
  Receive Date: 20250508
  Receipt Date: 20250528
  Transmission Date: 20250717
  Serious: No
  Sender: PFIZER
  Company Number: US-PFIZER INC-202500096694

PATIENT
  Age: 67 Year
  Sex: Female

DRUGS (3)
  1. IBRANCE [Suspect]
     Active Substance: PALBOCICLIB
     Route: 048
     Dates: start: 202502
  2. GABAPENTIN [Concomitant]
     Active Substance: GABAPENTIN
  3. SENOKOT [Concomitant]
     Active Substance: SENNOSIDES

REACTIONS (3)
  - Hypertension [Unknown]
  - Weight gain poor [Unknown]
  - Alopecia [Recovering/Resolving]
